FAERS Safety Report 12597690 (Version 1)
Quarter: 2016Q3

REPORT INFORMATION
  Report Type: Spontaneous
  Country: PL (occurrence: PL)
  Receive Date: 20160726
  Receipt Date: 20160726
  Transmission Date: 20161109
  Serious: Yes (Other)
  Sender: FDA-Public Use
  Company Number: PL-009507513-1607POL010261

PATIENT
  Age: 35 Year
  Sex: Female
  Weight: 54 kg

DRUGS (5)
  1. ORGALUTRAN [Suspect]
     Active Substance: GANIRELIX ACETATE
     Indication: OVULATION INDUCTION
     Dosage: CONCENTRATION: 0.25. TOTAL DAILY DOSE: 0.25.  SECOND CYCLE
     Route: 058
     Dates: start: 20160715, end: 20160717
  2. LAMETTA [Concomitant]
     Indication: OVULATION INDUCTION
     Dosage: 7.5 MG, QD
     Dates: start: 20160705, end: 20160708
  3. ORGALUTRAN [Suspect]
     Active Substance: GANIRELIX ACETATE
     Dosage: FIRST CYCLE
  4. PREGNYL [Concomitant]
     Active Substance: CHORIOGONADOTROPIN ALFA
     Indication: OVULATION INDUCTION
     Dosage: 10000 UNITS, QD
     Dates: start: 20160717, end: 20160717
  5. MENOPUR [Concomitant]
     Active Substance: FOLLICLE STIMULATING HORMONE BETA POLYPEPTIDE\LUTROPIN ALFA
     Indication: OVULATION INDUCTION
     Dosage: 150 UNITS, QD
     Dates: start: 20160712, end: 20160716

REACTIONS (1)
  - Premature ovulation [Unknown]

NARRATIVE: CASE EVENT DATE: 20160717
